FAERS Safety Report 11990291 (Version 1)
Quarter: 2016Q1

REPORT INFORMATION
  Report Type: Spontaneous
  Country: IT (occurrence: IT)
  Receive Date: 20160202
  Receipt Date: 20160202
  Transmission Date: 20160526
  Serious: Yes (Other)
  Sender: FDA-Public Use
  Company Number: IT-BAXTER-2016BAX005533

PATIENT
  Age: 59 Year
  Sex: Female

DRUGS (14)
  1. PREDNISONE. [Concomitant]
     Active Substance: PREDNISONE
     Indication: ANTINEUTROPHIL CYTOPLASMIC ANTIBODY POSITIVE
     Route: 065
  2. PENTOXIFYLLINE. [Concomitant]
     Active Substance: PENTOXIFYLLINE
     Indication: PERIPHERAL ARTERY THROMBOSIS
     Route: 065
  3. AZATHIOPRINE. [Concomitant]
     Active Substance: AZATHIOPRINE
     Indication: MICROSCOPIC POLYANGIITIS
  4. ENDOXAN BAXTER [Suspect]
     Active Substance: CYCLOPHOSPHAMIDE
     Indication: MICROSCOPIC POLYANGIITIS
  5. PREDNISONE. [Concomitant]
     Active Substance: PREDNISONE
     Indication: SYSTEMIC LUPUS ERYTHEMATOSUS
     Dosage: LOW DOSE
     Route: 065
  6. PREDNISONE. [Concomitant]
     Active Substance: PREDNISONE
     Indication: MICROSCOPIC POLYANGIITIS
     Route: 048
  7. HYDROXYCHLOROQUINE SULFATE. [Concomitant]
     Active Substance: HYDROXYCHLOROQUINE SULFATE
     Indication: SYSTEMIC LUPUS ERYTHEMATOSUS
     Route: 065
  8. SOMATOSTATIN [Concomitant]
     Active Substance: SOMATOSTATIN
     Indication: PRODUCT USED FOR UNKNOWN INDICATION
     Route: 065
  9. BUFLOMEDIL [Concomitant]
     Active Substance: BUFLOMEDIL
     Indication: PERIPHERAL ARTERY THROMBOSIS
     Route: 065
  10. AZATHIOPRINE. [Concomitant]
     Active Substance: AZATHIOPRINE
     Indication: ANTINEUTROPHIL CYTOPLASMIC ANTIBODY POSITIVE
     Route: 065
  11. AZATHIOPRINE. [Concomitant]
     Active Substance: AZATHIOPRINE
     Indication: PRODUCT USED FOR UNKNOWN INDICATION
  12. ILOPROST [Concomitant]
     Active Substance: ILOPROST
     Indication: MICROSCOPIC POLYANGIITIS
  13. ENDOXAN BAXTER [Suspect]
     Active Substance: CYCLOPHOSPHAMIDE
     Indication: ANTINEUTROPHIL CYTOPLASMIC ANTIBODY POSITIVE
     Route: 042
  14. ILOPROST [Concomitant]
     Active Substance: ILOPROST
     Indication: ANTINEUTROPHIL CYTOPLASMIC ANTIBODY POSITIVE
     Route: 042

REACTIONS (1)
  - Neurological decompensation [Recovering/Resolving]
